FAERS Safety Report 5281293-8 (Version None)
Quarter: 2007Q1

REPORT INFORMATION
  Report Type: 
  Country: None (occurrence: None)
  Receive Date: 20061221
  Receipt Date: 20061024
  Transmission Date: 20070707
  Serious: No
  Sender: FDA-Public Use
  Company Number: SP01010

PATIENT
  Sex: Male

DRUGS (1)
  1. XIFAXAN [Suspect]
     Dosage: ORAL
     Route: 048

REACTIONS (1)
  - URTICARIA [None]
